FAERS Safety Report 17784785 (Version 1)
Quarter: 2020Q2

REPORT INFORMATION
  Report Type: Spontaneous
  Country: US (occurrence: US)
  Receive Date: 20200514
  Receipt Date: 20200514
  Transmission Date: 20200714
  Serious: No
  Sender: FDA-Public Use
  Company Number: US-JNJFOC-20200514979

PATIENT
  Sex: Female
  Weight: 51.3 kg

DRUGS (1)
  1. STELARA [Suspect]
     Active Substance: USTEKINUMAB
     Indication: PSORIATIC ARTHROPATHY
     Route: 058

REACTIONS (4)
  - Dyspnoea [Unknown]
  - Headache [Recovered/Resolved]
  - Cough [Unknown]
  - Pyrexia [Recovered/Resolved]
